FAERS Safety Report 18290712 (Version 9)
Quarter: 2021Q3

REPORT INFORMATION
  Report Type: Spontaneous
  Country: CA (occurrence: CA)
  Receive Date: 20200922
  Receipt Date: 20210910
  Transmission Date: 20211014
  Serious: Yes (Hospitalization, Other)
  Sender: FDA-Public Use
  Company Number: CA-CELLTRION INC.-2019CA023978

PATIENT

DRUGS (13)
  1. INFLECTRA [Suspect]
     Active Substance: INFLIXIMAB-DYYB
     Dosage: 10 MG/KG, 0, 2, 6, AND THEN EVERY 8 WEEKS
     Route: 042
     Dates: start: 20210616
  2. INFLECTRA [Suspect]
     Active Substance: INFLIXIMAB-DYYB
     Dosage: 10 MG/KG, 0, 2, 6, AND THEN EVERY 8 WEEKS
     Route: 042
     Dates: start: 20210616
  3. INFLECTRA [Suspect]
     Active Substance: INFLIXIMAB-DYYB
     Dosage: 10 MG/KG, 0, 2, 6, AND THEN EVERY 8 WEEKS
     Route: 042
     Dates: start: 20200427
  4. INFLECTRA [Suspect]
     Active Substance: INFLIXIMAB-DYYB
     Dosage: 10 MG/KG, 0, 2, 6, AND THEN EVERY 8 WEEKS
     Route: 042
     Dates: start: 20200106
  5. INFLECTRA [Suspect]
     Active Substance: INFLIXIMAB-DYYB
     Dosage: 10 MG/KG, 0, 2, 6, AND THEN EVERY 8 WEEKS
     Route: 042
     Dates: start: 20210628
  6. BENADRYL [Concomitant]
     Active Substance: DIPHENHYDRAMINE HYDROCHLORIDE
     Indication: PREMEDICATION
     Dosage: 25 MG
     Route: 042
     Dates: start: 20210628, end: 20210628
  7. INFLECTRA [Suspect]
     Active Substance: INFLIXIMAB-DYYB
     Indication: CROHN^S DISEASE
     Dosage: 10 MG/KG, 0, 2, 6, AND THEN EVERY 8 WEEKS
     Route: 042
     Dates: start: 20190730
  8. INFLECTRA [Suspect]
     Active Substance: INFLIXIMAB-DYYB
     Dosage: 10 MG/KG, 0, 2, 6, AND THEN EVERY 8 WEEKS
     Route: 042
     Dates: start: 20190912
  9. INFLECTRA [Suspect]
     Active Substance: INFLIXIMAB-DYYB
     Dosage: 10 MG/KG, 0, 2, 6, AND THEN EVERY 8 WEEKS
     Route: 042
     Dates: start: 20200819
  10. INFLECTRA [Suspect]
     Active Substance: INFLIXIMAB-DYYB
     Dosage: 10 MG/KG, 0, 2, 6, AND THEN EVERY 8 WEEKS
     Route: 042
     Dates: start: 20191108
  11. INFLECTRA [Suspect]
     Active Substance: INFLIXIMAB-DYYB
     Dosage: 10 MG/KG, 0, 2, 6, AND THEN EVERY 8 WEEKS
     Route: 042
     Dates: start: 20210628
  12. INFLECTRA [Suspect]
     Active Substance: INFLIXIMAB-DYYB
     Dosage: 10 MG/KG, 0, 2, 6, AND THEN EVERY 8 WEEKS
     Route: 042
     Dates: start: 20210202
  13. INFLECTRA [Suspect]
     Active Substance: INFLIXIMAB-DYYB
     Dosage: 10 MG/KG, 0, 2, 6, AND THEN EVERY 8 WEEKS
     Route: 042
     Dates: start: 20210331

REACTIONS (24)
  - Tachycardia [Unknown]
  - Nasopharyngitis [Unknown]
  - Influenza like illness [Not Recovered/Not Resolved]
  - Blood pressure increased [Recovering/Resolving]
  - Respiratory disorder [Unknown]
  - Weight increased [Not Recovered/Not Resolved]
  - Skin discolouration [Unknown]
  - Hypersensitivity [Unknown]
  - Dyspnoea [Recovering/Resolving]
  - Condition aggravated [Unknown]
  - Heart rate increased [Unknown]
  - Blood pressure fluctuation [Unknown]
  - Oxygen saturation decreased [Recovering/Resolving]
  - Incorrect dose administered [Unknown]
  - Off label use [Unknown]
  - Tachypnoea [Unknown]
  - Depression [Not Recovered/Not Resolved]
  - Intentional product use issue [Unknown]
  - Productive cough [Not Recovered/Not Resolved]
  - Fatigue [Recovered/Resolved]
  - Cyanosis [Recovering/Resolving]
  - Hot flush [Unknown]
  - Eye infection [Unknown]
  - Inappropriate schedule of product administration [Unknown]

NARRATIVE: CASE EVENT DATE: 20190730
